FAERS Safety Report 8210710-6 (Version None)
Quarter: 2012Q1

REPORT INFORMATION
  Report Type: 
  Country: None (occurrence: None)
  Receive Date: 20120315
  Receipt Date: 20120313
  Transmission Date: 20120608
  Serious: Yes (Death, Hospitalization)
  Sender: FDA-Public Use
  Company Number: US-BRISTOL-MYERS SQUIBB COMPANY-15339294

PATIENT
  Age: 83 Year
  Sex: Male

DRUGS (14)
  1. ALLOPURINOL [Concomitant]
     Dosage: DOSE:100MG BID
     Route: 048
     Dates: start: 20100611
  2. TURMERIC [Concomitant]
     Route: 048
  3. IPILIMUMAB [Suspect]
     Indication: MALIGNANT MELANOMA
     Dosage: 270MG:21JUL-21JUL10 264MG:11AUG-11AUG10 267MG:22SEP-22SEP10 NO.OF COURSES:4
     Route: 042
     Dates: start: 20100721, end: 20100922
  4. RESVERATROL [Concomitant]
     Route: 048
  5. FISH OIL [Concomitant]
  6. LOVASTATIN [Concomitant]
     Dosage: AT BED TIME
     Route: 048
     Dates: start: 20100611
  7. RANITIDINE [Concomitant]
     Dosage: AT BED TIME
     Route: 048
     Dates: start: 20100611
  8. ASPIRIN [Concomitant]
     Dosage: EVENY OTHER DAY
     Route: 048
     Dates: start: 20100611
  9. FUROSEMIDE [Concomitant]
     Route: 048
     Dates: start: 20100611
  10. MULTI-VITAMINS [Concomitant]
  11. ATENOLOL [Concomitant]
     Route: 048
     Dates: start: 20100611
  12. IMODIUM [Concomitant]
  13. ARMODAFINIL [Concomitant]
     Dates: start: 20101104, end: 20101105
  14. PREDNISONE TAB [Concomitant]
     Dosage: 60MG IN THE MNG AND 20MG IN THE EVENING
     Route: 048
     Dates: start: 20100909

REACTIONS (24)
  - DIARRHOEA [None]
  - BLOOD GLUCOSE INCREASED [None]
  - DISORIENTATION [None]
  - COLON ADENOMA [None]
  - ANAEMIA [None]
  - GASTRITIS EROSIVE [None]
  - CAMPYLOBACTER TEST POSITIVE [None]
  - MALIGNANT MELANOMA [None]
  - NEOPLASM MALIGNANT [None]
  - PYREXIA [None]
  - RESPIRATORY DISTRESS [None]
  - NEOPLASM PROGRESSION [None]
  - PNEUMONIA [None]
  - OESOPHAGEAL CANDIDIASIS [None]
  - HYPOTENSION [None]
  - GASTROINTESTINAL HAEMORRHAGE [None]
  - DEHYDRATION [None]
  - CONFUSIONAL STATE [None]
  - HIATUS HERNIA [None]
  - ATRIAL FIBRILLATION [None]
  - DYSPNOEA [None]
  - COLITIS [None]
  - GENERAL PHYSICAL HEALTH DETERIORATION [None]
  - CARDIAC FAILURE CONGESTIVE [None]
